FAERS Safety Report 14530607 (Version 1)
Quarter: 2018Q1

REPORT INFORMATION
  Report Type: Report from Study
  Country: US (occurrence: US)
  Receive Date: 20180214
  Receipt Date: 20180214
  Transmission Date: 20180509
  Serious: No
  Sender: FDA-Public Use
  Company Number: PHEH2018US005407

PATIENT
  Age: 73 Year

DRUGS (1)
  1. ENTRESTO [Suspect]
     Active Substance: SACUBITRIL\VALSARTAN
     Indication: PRODUCT USED FOR UNKNOWN INDICATION
     Dosage: UNK UNK, IN THE AFTERNOON
     Route: 048
     Dates: start: 20180115

REACTIONS (6)
  - Nervousness [Unknown]
  - Sleep disorder [Unknown]
  - Inappropriate schedule of drug administration [Unknown]
  - Agitation [Unknown]
  - Dizziness [Unknown]
  - Pruritus [Unknown]

NARRATIVE: CASE EVENT DATE: 20180115
